FAERS Safety Report 5451707-9 (Version None)
Quarter: 2007Q3

REPORT INFORMATION
  Report Type: 
  Country: None (occurrence: None)
  Receive Date: 20070913
  Receipt Date: 20070903
  Transmission Date: 20080115
  Serious: Yes (Death)
  Sender: FDA-Public Use
  Company Number: GB-PFIZER INC-2007068514

PATIENT
  Age: 75 Year
  Sex: Female

DRUGS (3)
  1. SERTRALINE [Suspect]
  2. CARBAMAZEPINE [Suspect]
  3. PERICIAZINE [Suspect]

REACTIONS (1)
  - ACUTE RESPIRATORY DISTRESS SYNDROME [None]
